FAERS Safety Report 6072567-1 (Version None)
Quarter: 2009Q1

REPORT INFORMATION
  Report Type: 
  Country: None (occurrence: None)
  Receive Date: 20090210
  Receipt Date: 20090209
  Transmission Date: 20090719
  Serious: Yes (Other)
  Sender: FDA-Public Use
  Company Number: US-WYE-H06465708

PATIENT
  Sex: Female
  Weight: 98 kg

DRUGS (1)
  1. TYGACIL [Suspect]
     Indication: DIABETIC FOOT INFECTION
     Route: 042
     Dates: start: 20080828, end: 20080902

REACTIONS (1)
  - PANCREATITIS [None]
